FAERS Safety Report 5289306-4 (Version None)
Quarter: 2007Q2

REPORT INFORMATION
  Report Type: 
  Country: None (occurrence: None)
  Receive Date: 20070406
  Receipt Date: 20070329
  Transmission Date: 20071010
  Serious: Yes (Death, Other)
  Sender: FDA-Public Use
  Company Number: JP-JNJFOC-20070306620

PATIENT
  Age: 56 Year
  Sex: Male

DRUGS (11)
  1. DUROTEP [Suspect]
     Route: 062
  2. DUROTEP [Suspect]
     Route: 062
  3. DUROTEP [Suspect]
     Route: 062
  4. DUROTEP [Suspect]
     Indication: DRUG USE FOR UNKNOWN INDICATION
     Route: 062
  5. LASIX [Concomitant]
     Route: 048
  6. ALDACTAZIDE [Concomitant]
     Route: 048
  7. RINDERON [Concomitant]
     Route: 065
  8. HALOPERIDOL [Concomitant]
     Route: 065
  9. LENDORMIN [Concomitant]
     Route: 048
  10. LOXONIN [Concomitant]
     Route: 065
  11. NAUZELIN [Concomitant]
     Route: 065

REACTIONS (3)
  - MALIGNANT NEOPLASM PROGRESSION [None]
  - RESPIRATORY DEPRESSION [None]
  - TACHYCARDIA [None]
